FAERS Safety Report 10478678 (Version 1)
Quarter: 2014Q3

REPORT INFORMATION
  Report Type: Report from Study
  Country: CA (occurrence: CA)
  Receive Date: 20140926
  Receipt Date: 20140926
  Transmission Date: 20150326
  Serious: Yes (Hospitalization, Other)
  Sender: FDA-Public Use
  Company Number: CA-BRISTOL-MYERS SQUIBB COMPANY-21416466

PATIENT
  Age: 71 Year
  Sex: Male

DRUGS (16)
  1. ORENCIA [Suspect]
     Active Substance: ABATACEPT
     Indication: RHEUMATOID ARTHRITIS
     Route: 058
     Dates: start: 201407
  2. ASPIRIN. [Concomitant]
     Active Substance: ASPIRIN
  3. MAGNESIUM [Concomitant]
     Active Substance: MAGNESIUM
  4. FENTANYL TRANSDERMAL SYSTEM [Concomitant]
     Active Substance: FENTANYL
  5. CALCIUM [Concomitant]
     Active Substance: CALCIUM
  6. EFFEXOR [Concomitant]
     Active Substance: VENLAFAXINE HYDROCHLORIDE
  7. MONOPRIL [Concomitant]
     Active Substance: FOSINOPRIL SODIUM
  8. DILAUDID [Concomitant]
     Active Substance: HYDROMORPHONE HYDROCHLORIDE
  9. IMOVANE [Concomitant]
     Active Substance: ZOPICLONE
  10. NASONEX [Concomitant]
     Active Substance: MOMETASONE FUROATE
  11. NITROGLYCERIN. [Concomitant]
     Active Substance: NITROGLYCERIN
  12. IRON [Concomitant]
     Active Substance: IRON
  13. LYRICA [Concomitant]
     Active Substance: PREGABALIN
  14. DIAZEPAM. [Concomitant]
     Active Substance: DIAZEPAM
  15. HYDROMORPH CONTIN [Concomitant]
     Active Substance: HYDROMORPHONE
  16. XARELTO [Concomitant]
     Active Substance: RIVAROXABAN

REACTIONS (2)
  - Pulmonary thrombosis [Unknown]
  - Joint dislocation [Unknown]
